FAERS Safety Report 7539848-3 (Version None)
Quarter: 2011Q2

REPORT INFORMATION
  Report Type: 
  Country: None (occurrence: None)
  Receive Date: 20110610
  Receipt Date: 20110606
  Transmission Date: 20111010
  Serious: Yes (Other)
  Sender: FDA-Public Use
  Company Number: US-MYLANLABS-2011S1011396

PATIENT
  Age: 27 Year
  Sex: Female

DRUGS (3)
  1. AMNESTEEM [Suspect]
     Route: 048
     Dates: start: 20110307, end: 20110328
  2. AMNESTEEM [Suspect]
     Route: 048
     Dates: start: 20110208, end: 20110307
  3. ORAL CONTRACEPTIVE NOS [Concomitant]

REACTIONS (1)
  - DRUG EXPOSURE BEFORE PREGNANCY [None]
